FAERS Safety Report 23455657 (Version 1)
Quarter: 2024Q1

REPORT INFORMATION
  Report Type: Spontaneous
  Country: US (occurrence: None)
  Receive Date: 20240129
  Receipt Date: 20240129
  Transmission Date: 20240409
  Serious: Yes (Other)
  Sender: FDA-Public Use
  Company Number: None

PATIENT
  Age: 13 Year
  Sex: Male
  Weight: 46.3 kg

DRUGS (6)
  1. ALTUVIIIO [Suspect]
     Active Substance: EFANESOCTOCOG ALFA
     Indication: Factor VIII deficiency
     Dosage: OTHER FREQUENCY : ONCE;?
     Route: 042
     Dates: start: 20240126, end: 20240129
  2. ELOCTATE [Concomitant]
     Active Substance: EFMOROCTOCOG ALFA
     Dates: start: 20240124
  3. CELEBREX [Concomitant]
     Active Substance: CELECOXIB
     Dates: start: 20240124
  4. DEXAMETHASONE [Concomitant]
     Active Substance: DEXAMETHASONE
     Dates: start: 20240124
  5. HYDROCODONE [Concomitant]
     Active Substance: HYDROCODONE
     Dates: start: 20240124
  6. TRANEXAMIC ACID [Concomitant]
     Active Substance: TRANEXAMIC ACID
     Dates: start: 20240124

REACTIONS (7)
  - Feeling hot [None]
  - Head discomfort [None]
  - Cough [None]
  - Dyspnoea [None]
  - Infusion related reaction [None]
  - Tachycardia [None]
  - Oxygen saturation decreased [None]

NARRATIVE: CASE EVENT DATE: 20240129
